FAERS Safety Report 6370820-5 (Version None)
Quarter: 2009Q3

REPORT INFORMATION
  Report Type: 
  Country: None (occurrence: None)
  Receive Date: 20090923
  Receipt Date: 20070608
  Transmission Date: 20100115
  Serious: Yes (Hospitalization, Other)
  Sender: FDA-Public Use
  Company Number: US-ASTRAZENECA-2006UW24332

PATIENT
  Age: 10068 Day
  Sex: Male
  Weight: 72.6 kg

DRUGS (21)
  1. SEROQUEL [Suspect]
     Indication: BIPOLAR DISORDER
     Dosage: 25 MG TO 300 MG
     Route: 048
     Dates: start: 20020816
  2. ZYPREXA [Suspect]
     Dates: start: 19980601, end: 19990205
  3. RISPERDAL [Concomitant]
  4. LITHIUM [Concomitant]
     Dates: start: 20020323
  5. ATIVAN [Concomitant]
     Dates: start: 20020815
  6. HALDOL [Concomitant]
     Route: 048
     Dates: start: 20020815
  7. INSULIN [Concomitant]
  8. BUPROPION HCL [Concomitant]
  9. NICOTINE [Concomitant]
     Dates: start: 20030528
  10. ACETAMINOPHEN [Concomitant]
     Route: 048
     Dates: start: 20030527
  11. POTASSIUM CHLORIDE [Concomitant]
     Dates: start: 20040103, end: 20040103
  12. ATROPINE [Concomitant]
     Dosage: 0.5 TO 1 MG
     Dates: start: 20040102
  13. DIAZEPAM [Concomitant]
     Dates: start: 20040102
  14. LANTUS [Concomitant]
     Dates: start: 20040510
  15. HUMALOG [Concomitant]
     Dates: start: 20040510
  16. PRINIVIL [Concomitant]
     Dates: start: 20040510
  17. LOVASTATIN [Concomitant]
     Dates: start: 20040510
  18. ACETAMINOPHEN AND HYDROCODONE BITARTRATE [Concomitant]
     Dates: start: 20070428
  19. CYCLOBENZAPRINE [Concomitant]
     Dates: start: 20070428
  20. IBUPROFEN [Concomitant]
     Dates: start: 20070428
  21. NOVOLIN R [Concomitant]
     Dates: start: 20060914

REACTIONS (5)
  - DIABETES MELLITUS [None]
  - DIABETIC COMA [None]
  - DIABETIC KETOACIDOSIS [None]
  - EPILEPSY [None]
  - SUICIDAL IDEATION [None]
